FAERS Safety Report 19288943 (Version 1)
Quarter: 2021Q2

REPORT INFORMATION
  Report Type: Spontaneous
  Country: CN (occurrence: CN)
  Receive Date: 20210521
  Receipt Date: 20210521
  Transmission Date: 20210717
  Serious: Yes (Disabling)
  Sender: FDA-Public Use
  Company Number: CN-ASTRAZENECA-2021A443365

PATIENT
  Age: 27191 Day
  Sex: Male
  Weight: 65 kg

DRUGS (8)
  1. METFORMIN HYDROCHLORIDE. [Concomitant]
     Active Substance: METFORMIN HYDROCHLORIDE
     Indication: PNEUMONIA
     Route: 048
     Dates: start: 20210421, end: 20210426
  2. FUROSEMIDE. [Suspect]
     Active Substance: FUROSEMIDE
     Indication: CARDIAC FAILURE
     Route: 048
     Dates: start: 20210419, end: 20210428
  3. ATORVASTATIN CALCIUM. [Concomitant]
     Active Substance: ATORVASTATIN CALCIUM
     Indication: HYPERGLYCAEMIA
     Route: 048
     Dates: start: 20210420, end: 20210428
  4. FORXIGA [Suspect]
     Active Substance: DAPAGLIFLOZIN
     Indication: HYPERGLYCAEMIA
     Route: 048
     Dates: start: 20210421, end: 20210426
  5. CEFIXIME. [Concomitant]
     Active Substance: CEFIXIME
     Indication: CARDIAC FAILURE
     Route: 048
     Dates: start: 20210419, end: 20210423
  6. ACARBOSE. [Concomitant]
     Active Substance: ACARBOSE
     Indication: CARDIAC FAILURE
     Route: 048
     Dates: start: 20210421, end: 20210428
  7. SPIRONOLACTONE. [Suspect]
     Active Substance: SPIRONOLACTONE
     Indication: CARDIAC FAILURE
     Route: 048
     Dates: start: 20210419, end: 20210426
  8. PANTOPRAZOLE SODIUM FOR INJECTION [Suspect]
     Active Substance: PANTOPRAZOLE SODIUM
     Indication: PNEUMONIA
     Route: 041
     Dates: start: 20210419, end: 20210426

REACTIONS (1)
  - Renal impairment [Unknown]

NARRATIVE: CASE EVENT DATE: 20210426
